FAERS Safety Report 8353568-7 (Version None)
Quarter: 2012Q2

REPORT INFORMATION
  Report Type: 
  Country: None (occurrence: None)
  Receive Date: 20120511
  Receipt Date: 20110607
  Transmission Date: 20120825
  Serious: No
  Sender: FDA-Public Use
  Company Number: US-GLAXOSMITHKLINE-A0931652A

PATIENT
  Sex: Female
  Weight: 34.5 kg

DRUGS (1)
  1. TYKERB [Suspect]
     Dosage: 1000MG PER DAY
     Route: 065
     Dates: start: 20110404

REACTIONS (14)
  - DIARRHOEA [None]
  - NAUSEA [None]
  - DRY SKIN [None]
  - SPEECH DISORDER [None]
  - SKIN EXFOLIATION [None]
  - FATIGUE [None]
  - VOMITING [None]
  - WEIGHT DECREASED [None]
  - PRURITUS [None]
  - ABDOMINAL PAIN [None]
  - ASTHENIA [None]
  - DECREASED APPETITE [None]
  - TREATMENT NONCOMPLIANCE [None]
  - DRUG ADMINISTRATION ERROR [None]
